FAERS Safety Report 4416469-2 (Version None)
Quarter: 2004Q2

REPORT INFORMATION
  Report Type: 
  Country: None (occurrence: None)
  Receive Date: 20040628
  Receipt Date: 20030604
  Transmission Date: 20050107
  Serious: Yes (Hospitalization)
  Sender: FDA-Public Use
  Company Number: 339668

PATIENT
  Age: 71 Year
  Sex: Female

DRUGS (13)
  1. CELLCEPT [Suspect]
     Dates: end: 20030313
  2. KEPPRA [Suspect]
     Indication: CONVULSION
     Dosage: ORAL
     Route: 048
     Dates: start: 20000615, end: 20030418
  3. TEMOZOLOMIDE (TEMOZOLOMIDE) [Suspect]
  4. DEPAKOTE [Suspect]
     Indication: CONVULSION
     Dosage: ORAL
     Route: 048
     Dates: end: 20030327
  5. SYNTHROID [Concomitant]
  6. PROTONIX [Concomitant]
  7. PREVACID [Concomitant]
  8. FOLIC ACID [Concomitant]
  9. ATIVAN [Concomitant]
  10. TEQUIN [Concomitant]
  11. PREDNISONE [Concomitant]
  12. CHEMOTHERAPY (ANTINEOPLASTIC AGENT NOS) [Concomitant]
  13. TOPAMAX [Concomitant]

REACTIONS (2)
  - BONE MARROW DEPRESSION [None]
  - PANCYTOPENIA [None]
